FAERS Safety Report 9438328 (Version 2)
Quarter: 2014Q1

REPORT INFORMATION
  Report Type: Spontaneous
  Country: US (occurrence: US)
  Receive Date: 20130802
  Receipt Date: 20140116
  Transmission Date: 20141002
  Serious: Yes (Hospitalization)
  Sender: FDA-Public Use
  Company Number: US-BAYER-2013-093330

PATIENT
  Age: 37 Year
  Sex: Female
  Weight: 79.37 kg

DRUGS (2)
  1. MIRENA [Suspect]
     Indication: CONTRACEPTION
     Dosage: 20 MCG/24HR, CONT
     Route: 015
     Dates: start: 201110, end: 20111125
  2. METFORMIN [Concomitant]
     Indication: MENORRHAGIA
     Dosage: UNK
     Dates: start: 2009

REACTIONS (4)
  - Embedded device [None]
  - Device issue [None]
  - Pain [None]
  - Anxiety [None]
